FAERS Safety Report 4396327-2 (Version None)
Quarter: 2004Q2

REPORT INFORMATION
  Report Type: 
  Country: None (occurrence: None)
  Receive Date: 20040621
  Receipt Date: 20031121
  Transmission Date: 20050107
  Serious: Yes (Death)
  Sender: FDA-Public Use
  Company Number: USA-2003-0010945

PATIENT
  Age: 43 Year
  Sex: Female
  Weight: 96.6 kg

DRUGS (10)
  1. OXYCODONE HCL [Suspect]
  2. CITALOPRAM [Suspect]
  3. PROMETHAZINE [Suspect]
  4. ALPRAZOLAM [Suspect]
  5. LORAZEPAM [Suspect]
  6. DOXEPIN HCL [Suspect]
  7. METHADONE HCL [Suspect]
  8. PHENOTHIAZINE (PHENOTHIAZINE) [Suspect]
  9. ACETAMINOPHEN [Suspect]
  10. NICOTINE [Suspect]

REACTIONS (2)
  - INTENTIONAL OVERDOSE [None]
  - MULTIPLE DRUG OVERDOSE [None]
